FAERS Safety Report 12502415 (Version 1)
Quarter: 2016Q2

REPORT INFORMATION
  Report Type: Report from Study
  Country: ES (occurrence: ES)
  Receive Date: 20160627
  Receipt Date: 20160627
  Transmission Date: 20160815
  Serious: Yes (Hospitalization)
  Sender: FDA-Public Use
  Company Number: ES-ABBVIE-16P-144-1658621-00

PATIENT
  Age: 47 Year
  Sex: Male
  Weight: 83 kg

DRUGS (3)
  1. RIBAVIRIN. [Suspect]
     Active Substance: RIBAVIRIN
     Indication: HEPATITIS C
     Route: 048
     Dates: start: 20150918, end: 20151211
  2. VIEKIRAX [Suspect]
     Active Substance: OMBITASVIR\PARITAPREVIR\RITONAVIR
     Indication: HEPATITIS C
     Route: 048
     Dates: start: 20150918, end: 20151211
  3. PREZISTA [Concomitant]
     Active Substance: DARUNAVIR ETHANOLATE
     Indication: HIV INFECTION
     Route: 048
     Dates: start: 2015

REACTIONS (1)
  - Diarrhoea haemorrhagic [Not Recovered/Not Resolved]

NARRATIVE: CASE EVENT DATE: 20160519
